FAERS Safety Report 24550383 (Version 1)
Quarter: 2024Q4

REPORT INFORMATION
  Report Type: Spontaneous
  Country: US (occurrence: US)
  Receive Date: 20241025
  Receipt Date: 20241025
  Transmission Date: 20250115
  Serious: Yes (Hospitalization, Other)
  Sender: ANI
  Company Number: US-ANIPHARMA-2024-US-057297

PATIENT
  Age: 80 Year
  Sex: Female

DRUGS (13)
  1. NEBIVOLOL HYDROCHLORIDE [Suspect]
     Active Substance: NEBIVOLOL HYDROCHLORIDE
     Indication: Product used for unknown indication
  2. IBUPROFEN [Concomitant]
     Active Substance: IBUPROFEN
     Dosage: 800 MG
  3. Prednlsone [Concomitant]
     Dosage: 20 MG
  4. Tramadol HCL powder [Concomitant]
  5. TYLENOL [Concomitant]
     Active Substance: ACETAMINOPHEN
     Dosage: 325 MG
  6. DUPIXENT [Suspect]
     Active Substance: DUPILUMAB
     Dosage: 300 MG, QOW
     Route: 058
     Dates: start: 20240729
  7. SPIRIVA [Suspect]
     Active Substance: TIOTROPIUM BROMIDE MONOHYDRATE
  8. ATORVASTATIN [Concomitant]
     Active Substance: ATORVASTATIN
     Dosage: 80 MG
  9. Budesonlde [Concomitant]
  10. Clopidogrel powder [Concomitant]
  11. ELIQUIS [Concomitant]
     Active Substance: APIXABAN
     Dosage: 5 MG
  12. FORMOTEROL FUMARATE [Concomitant]
     Active Substance: FORMOTEROL FUMARATE
  13. GABAPENTIN [Concomitant]
     Active Substance: GABAPENTIN
     Dosage: 800 MG

REACTIONS (4)
  - Atrial fibrillation [Unknown]
  - Chest pain [Unknown]
  - Bronchospasm paradoxical [Unknown]
  - Dizziness [Unknown]

NARRATIVE: CASE EVENT DATE: 20240701
